FAERS Safety Report 20410337 (Version 1)
Quarter: 2022Q1

REPORT INFORMATION
  Report Type: Spontaneous
  Country: US (occurrence: None)
  Receive Date: 20220201
  Receipt Date: 20220201
  Transmission Date: 20220423
  Serious: Yes (Hospitalization, Other)
  Sender: FDA-Public Use
  Company Number: US-Hikma Pharmaceuticals USA Inc.-US-H14001-22-00268

PATIENT
  Age: 68 Year
  Sex: Male

DRUGS (6)
  1. ATIVAN [Suspect]
     Active Substance: LORAZEPAM
     Indication: Anxiety
     Route: 065
     Dates: start: 20150603
  2. ATIVAN [Suspect]
     Active Substance: LORAZEPAM
     Indication: Sedative therapy
     Route: 065
     Dates: start: 20150603
  3. PALBOCICLIB [Suspect]
     Active Substance: PALBOCICLIB
     Indication: Mantle cell lymphoma recurrent
     Route: 048
     Dates: start: 20150423
  4. IBRUTINIB [Suspect]
     Active Substance: IBRUTINIB
     Indication: Mantle cell lymphoma recurrent
     Route: 048
     Dates: start: 20150423
  5. DEMEROL [Suspect]
     Active Substance: MEPERIDINE HYDROCHLORIDE
     Indication: Sedative therapy
     Route: 065
     Dates: start: 20150603
  6. VALTREX [Concomitant]
     Active Substance: VALACYCLOVIR HYDROCHLORIDE
     Indication: Herpes zoster
     Dosage: UNKNOWN
     Route: 065
     Dates: start: 20150601

REACTIONS (13)
  - Hypoxia [Recovered/Resolved]
  - Herpes zoster meningoencephalitis [Unknown]
  - Somnolence [Recovered/Resolved]
  - Mental status changes [Unknown]
  - Cold sweat [Unknown]
  - Back pain [Unknown]
  - Unresponsive to stimuli [Unknown]
  - Lethargy [Unknown]
  - Tachycardia [Unknown]
  - Pyrexia [Unknown]
  - Varicella zoster virus infection [Unknown]
  - QRS axis abnormal [Unknown]
  - Supraventricular extrasystoles [Unknown]

NARRATIVE: CASE EVENT DATE: 20150603
